FAERS Safety Report 9863125 (Version 1)
Quarter: 2014Q1

REPORT INFORMATION
  Report Type: Spontaneous
  Country: US (occurrence: US)
  Receive Date: 20140203
  Receipt Date: 20140203
  Transmission Date: 20141002
  Serious: Yes (Other)
  Sender: FDA-Public Use
  Company Number: PHEH2014US002142

PATIENT
  Sex: Male

DRUGS (3)
  1. DIOVAN [Suspect]
     Dosage: UNK UKN, UNK
  2. HYDROCHLOROTHIAZIDE [Suspect]
     Dosage: UNK UKN, UNK
  3. AMLODIPINE [Suspect]
     Dosage: UNK UKN, UNK

REACTIONS (1)
  - Diabetes mellitus [Unknown]
